FAERS Safety Report 9589166 (Version 1)
Quarter: 2013Q4

REPORT INFORMATION
  Report Type: Spontaneous
  Country: US (occurrence: US)
  Receive Date: 20131003
  Receipt Date: 20131003
  Transmission Date: 20140711
  Serious: No
  Sender: FDA-Public Use
  Company Number: US-AMGEN-USASP2012069205

PATIENT
  Sex: Female

DRUGS (11)
  1. ENBREL [Suspect]
     Indication: RHEUMATOID ARTHRITIS
     Dosage: 50 MG, QWK
     Route: 058
  2. FOLIC ACID [Concomitant]
     Dosage: UNK
  3. PREDNISONE [Concomitant]
     Dosage: 1 MG, UNK
  4. PRILOSEC                           /00661201/ [Concomitant]
     Dosage: 10 MG, UNK
  5. ALLEGRA [Concomitant]
     Dosage: 30 MG, UNK
  6. METHOTREXATE [Concomitant]
     Dosage: 2.5 MG, UNK
  7. VITAMIN B12                        /00056201/ [Concomitant]
     Dosage: 50 MUG, UNK
  8. VITAMIN B6 [Concomitant]
     Dosage: 50 MG, UNK
  9. VITAMIN K                          /00032401/ [Concomitant]
     Dosage: 100 MUG, UNK
  10. GRAPE SEED [Concomitant]
     Dosage: 25 MG, UNK
  11. TYLENOL ARTHRITIS [Concomitant]
     Dosage: 650 MG, UNK

REACTIONS (3)
  - Injection site pruritus [Unknown]
  - Injection site swelling [Unknown]
  - Injection site erythema [Unknown]
